FAERS Safety Report 5938479-6 (Version None)
Quarter: 2008Q4

REPORT INFORMATION
  Report Type: 
  Country: None (occurrence: None)
  Receive Date: 20081103
  Receipt Date: 20081022
  Transmission Date: 20090506
  Serious: Yes (Hospitalization)
  Sender: FDA-Public Use
  Company Number: GB-AMGEN-UK237318

PATIENT
  Sex: Male

DRUGS (16)
  1. ROMIPLOSTIM [Suspect]
     Indication: IDIOPATHIC THROMBOCYTOPENIC PURPURA
     Route: 058
     Dates: start: 20070713
  2. ROMIPLOSTIM [Suspect]
     Route: 058
     Dates: start: 20070810, end: 20070810
  3. CALCICHEW [Concomitant]
     Route: 048
     Dates: start: 20070101
  4. ALLOPURINOL [Concomitant]
     Route: 048
     Dates: start: 20070730, end: 20070815
  5. MULTI-VITAMINS [Concomitant]
     Route: 048
     Dates: start: 20070101
  6. LANSOPRAZOLE [Concomitant]
     Route: 048
     Dates: start: 20070730
  7. ASPIRIN [Concomitant]
     Route: 048
     Dates: start: 20070727, end: 20070803
  8. CAPTOPRIL [Concomitant]
     Route: 048
     Dates: start: 19930101
  9. ACETAMINOPHEN [Concomitant]
     Route: 048
     Dates: start: 20070730, end: 20070808
  10. MAXOLON [Concomitant]
     Route: 042
     Dates: start: 20070730, end: 20070807
  11. LACTULOSE [Concomitant]
     Route: 048
     Dates: start: 20070730
  12. PHOSPHATE-SANDOZ [Concomitant]
     Route: 054
     Dates: start: 20070802, end: 20070802
  13. CHLORPHENIRAMINE MALEATE [Concomitant]
     Route: 048
     Dates: start: 20070808, end: 20070808
  14. MOVICOL [Concomitant]
     Route: 048
     Dates: start: 20070801
  15. IRBESARTAN [Concomitant]
     Route: 048
     Dates: start: 20070720, end: 20070815
  16. PREDNISOLONE [Concomitant]
     Dates: start: 20071201

REACTIONS (4)
  - DYSPNOEA [None]
  - LOWER RESPIRATORY TRACT INFECTION [None]
  - MOBILITY DECREASED [None]
  - MUSCULAR WEAKNESS [None]
